FAERS Safety Report 6938296-4 (Version None)
Quarter: 2010Q3

REPORT INFORMATION
  Report Type: 
  Country: None (occurrence: None)
  Receive Date: 20100824
  Receipt Date: 20100812
  Transmission Date: 20110219
  Serious: Yes (Death)
  Sender: FDA-Public Use
  Company Number: PE-PFIZER INC-2010101640

PATIENT
  Age: 90 Year
  Sex: Female

DRUGS (1)
  1. XANAX [Suspect]
     Indication: PANIC DISORDER
     Dosage: 0.5 MG, 2X/DAY
     Route: 048
     Dates: start: 20100607

REACTIONS (1)
  - DEATH [None]
